FAERS Safety Report 8197180-1 (Version None)
Quarter: 2012Q1

REPORT INFORMATION
  Report Type: 
  Country: None (occurrence: None)
  Receive Date: 20120309
  Receipt Date: 20120227
  Transmission Date: 20120608
  Serious: Yes (Hospitalization)
  Sender: FDA-Public Use
  Company Number: FR-UCBSA-048470

PATIENT
  Age: 25 Year
  Sex: Female
  Weight: 75 kg

DRUGS (2)
  1. CERTOLIZUMAB PEGOL [Suspect]
     Indication: SPONDYLITIS
     Dosage: 400MG
     Route: 058
  2. ETANERCEPT [Concomitant]
     Indication: SPONDYLITIS
     Route: 058
     Dates: start: 20111207

REACTIONS (1)
  - CHOLELITHIASIS MIGRATION [None]
